FAERS Safety Report 8110828-2 (Version None)
Quarter: 2012Q1

REPORT INFORMATION
  Report Type: 
  Country: None (occurrence: None)
  Receive Date: 20120201
  Receipt Date: 20120201
  Transmission Date: 20120608
  Serious: Yes (Life-Threatening, Hospitalization)
  Sender: FDA-Public Use
  Company Number: None

PATIENT
  Age: 70 Year
  Sex: Male
  Weight: 98.2 kg

DRUGS (1)
  1. IOPROMIDE [Suspect]
     Indication: INVESTIGATION
     Dates: start: 20120130, end: 20120130

REACTIONS (3)
  - ANAPHYLACTIC REACTION [None]
  - TACHYCARDIA [None]
  - HYPOTENSION [None]
